FAERS Safety Report 24537407 (Version 1)
Quarter: 2024Q4

REPORT INFORMATION
  Report Type: Report from Study
  Country: US (occurrence: US)
  Receive Date: 20241022
  Receipt Date: 20241022
  Transmission Date: 20250114
  Serious: Yes (Other)
  Sender: BEIGENE
  Company Number: US-BEIGENE-BGN-2024-016701

PATIENT

DRUGS (1)
  1. BRUKINSA [Suspect]
     Active Substance: ZANUBRUTINIB
     Indication: Waldenstrom^s macroglobulinaemia
     Dosage: 160 MILLIGRAM, BID
     Route: 048

REACTIONS (4)
  - Large intestine perforation [Recovered/Resolved]
  - Procedural headache [Recovered/Resolved]
  - Post procedural fever [Recovered/Resolved]
  - Colonoscopy [Unknown]

NARRATIVE: CASE EVENT DATE: 20241008
